FAERS Safety Report 6594926-0 (Version None)
Quarter: 2010Q1

REPORT INFORMATION
  Report Type: 
  Country: None (occurrence: None)
  Receive Date: 20100222
  Receipt Date: 20100212
  Transmission Date: 20100710
  Serious: Yes (Life-Threatening, Hospitalization)
  Sender: FDA-Public Use
  Company Number: DE-ABBOTT-10P-062-0626310-00

PATIENT
  Age: 15 Month
  Weight: 11 kg

DRUGS (1)
  1. KLACID FORTE SUSPENSION [Suspect]
     Indication: DRUG USE FOR UNKNOWN INDICATION
     Dosage: 250MG/5ML,  5ML TWICE A DAY
     Route: 048
     Dates: start: 20070611

REACTIONS (2)
  - DRUG PRESCRIBING ERROR [None]
  - TYPE 1 DIABETES MELLITUS [None]
